FAERS Safety Report 16232704 (Version 1)
Quarter: 2019Q2

REPORT INFORMATION
  Report Type: Spontaneous
  Country: US (occurrence: US)
  Receive Date: 20190423
  Receipt Date: 20190423
  Transmission Date: 20190711
  Serious: Yes (Other)
  Sender: FDA-Public Use
  Company Number: None

PATIENT
  Age: 60 Year
  Sex: Female

DRUGS (9)
  1. DALFAMPRIDINE. [Suspect]
     Active Substance: DALFAMPRIDINE
     Indication: MULTIPLE SCLEROSIS
     Route: 048
     Dates: start: 20190205
  2. TYSABRI [Concomitant]
     Active Substance: NATALIZUMAB
  3. GABAPENTIN. [Concomitant]
     Active Substance: GABAPENTIN
  4. TIZANIDINE. [Concomitant]
     Active Substance: TIZANIDINE
  5. LISINOPRIL. [Concomitant]
     Active Substance: LISINOPRIL
  6. LORAZEPAM. [Concomitant]
     Active Substance: LORAZEPAM
  7. CELEXA [Suspect]
     Active Substance: CITALOPRAM HYDROBROMIDE
  8. CLARITIN [Concomitant]
     Active Substance: LORATADINE
  9. ZOCOR [Concomitant]
     Active Substance: SIMVASTATIN

REACTIONS (2)
  - Blood sodium decreased [None]
  - Cerebrovascular accident [None]
